FAERS Safety Report 9864498 (Version 3)
Quarter: 2014Q1

REPORT INFORMATION
  Report Type: Spontaneous
  Country: US (occurrence: US)
  Receive Date: 20140203
  Receipt Date: 20140307
  Transmission Date: 20141002
  Serious: No
  Sender: FDA-Public Use
  Company Number: US-AMGEN-USASP2013091598

PATIENT
  Age: 35 Year
  Sex: Female
  Weight: 63.04 kg

DRUGS (1)
  1. ENBREL [Suspect]
     Indication: RHEUMATOID ARTHRITIS
     Dosage: 50 MG, QWK
     Route: 065
     Dates: start: 20101014

REACTIONS (2)
  - Arthropathy [Recovered/Resolved]
  - Rheumatoid arthritis [Unknown]
